FAERS Safety Report 9601330 (Version 3)
Quarter: 2014Q4

REPORT INFORMATION
  Report Type: Report from Study
  Country: JP (occurrence: JP)
  Receive Date: 20131007
  Receipt Date: 20141110
  Transmission Date: 20150529
  Serious: Yes (Other)
  Sender: FDA-Public Use
  Company Number: JP-ROCHE-1281403

PATIENT

DRUGS (3)
  1. BEVACIZUMAB [Suspect]
     Active Substance: BEVACIZUMAB
     Indication: NON-SMALL CELL LUNG CANCER
     Dosage: (INDUCTION PHASE) FOLLOWED BY MAINTENANCE TREATMENT REPEATED EVERY 3 WEEKS
     Route: 065
  2. DOCETAXEL. [Suspect]
     Active Substance: DOCETAXEL
     Indication: NON-SMALL CELL LUNG CANCER
     Dosage: UP TO 6 CYCLES
     Route: 065
  3. CARBOPLATIN. [Suspect]
     Active Substance: CARBOPLATIN
     Indication: NON-SMALL CELL LUNG CANCER
     Dosage: (AUC=6), UP TO 6 CYCLES
     Route: 065

REACTIONS (23)
  - Thrombocytopenia [Unknown]
  - Febrile neutropenia [Unknown]
  - Cholecystitis [Unknown]
  - Hyperkalaemia [Unknown]
  - Infection [Unknown]
  - Anaemia [Unknown]
  - Hypertension [Unknown]
  - Constipation [Unknown]
  - Cancer pain [Unknown]
  - Ileus [Unknown]
  - Tumour pain [Unknown]
  - Decreased appetite [Unknown]
  - Neutropenia [Unknown]
  - Fatigue [Unknown]
  - Nausea [Unknown]
  - Mucosal inflammation [Unknown]
  - Stomatitis [Unknown]
  - Leukopenia [Unknown]
  - Hypoalbuminaemia [Unknown]
  - Blood alkaline phosphatase increased [Unknown]
  - Proteinuria [Unknown]
  - Diarrhoea [Unknown]
  - Hyponatraemia [Unknown]
